FAERS Safety Report 8617734-5 (Version None)
Quarter: 2012Q3

REPORT INFORMATION
  Report Type: 
  Country: None (occurrence: None)
  Receive Date: 20120824
  Receipt Date: 20120110
  Transmission Date: 20120928
  Serious: No
  Sender: FDA-Public Use
  Company Number: US-ASTRAZENECA-2012SE02205

PATIENT
  Age: 33 Year
  Sex: Male

DRUGS (2)
  1. VENTOLIN [Concomitant]
  2. SYMBICORT [Suspect]
     Route: 055

REACTIONS (2)
  - DYSPNOEA [None]
  - DRUG INEFFECTIVE [None]
